FAERS Safety Report 9468726 (Version 2)
Quarter: 2013Q3

REPORT INFORMATION
  Report Type: Report from Study
  Country: BE (occurrence: BE)
  Receive Date: 20130821
  Receipt Date: 20130827
  Transmission Date: 20140515
  Serious: Yes (Hospitalization)
  Sender: FDA-Public Use
  Company Number: BE-AMGEN-BELCT2013057959

PATIENT
  Age: 46 Year
  Sex: Female
  Weight: 50 kg

DRUGS (10)
  1. ETANERCEPT [Suspect]
     Indication: RHEUMATOID ARTHRITIS
     Dosage: 25 MG, 2X/WK
     Route: 058
     Dates: start: 20060404, end: 20070831
  2. ARAVA [Concomitant]
     Indication: RHEUMATOID ARTHRITIS
     Dosage: UNK
     Route: 065
     Dates: start: 20030212, end: 20070831
  3. ASAFLOW [Concomitant]
     Dosage: UNK
     Route: 048
     Dates: start: 20041124, end: 20070910
  4. ASAFLOW [Concomitant]
     Dosage: UNK
     Route: 048
     Dates: start: 20070917
  5. XANAX [Concomitant]
     Dosage: UNK
     Route: 048
     Dates: start: 20041129
  6. TILDIEM [Concomitant]
     Dosage: UNK
     Route: 048
     Dates: start: 20041127
  7. NEXIUM                             /01479302/ [Concomitant]
     Dosage: UNK
     Route: 048
     Dates: start: 20030611
  8. ZESTRIL [Concomitant]
     Dosage: UNK
     Route: 048
     Dates: start: 200506
  9. LORMETAZEPAM [Concomitant]
     Dosage: UNK
     Route: 048
     Dates: start: 200411
  10. ZOCOR [Concomitant]
     Dosage: UNK
     Route: 048

REACTIONS (2)
  - Pulmonary granuloma [Recovered/Resolved]
  - Interstitial lung disease [Recovered/Resolved]
